FAERS Safety Report 24428747 (Version 1)
Quarter: 2024Q4

REPORT INFORMATION
  Report Type: Spontaneous
  Country: US (occurrence: US)
  Receive Date: 20241011
  Receipt Date: 20241011
  Transmission Date: 20250115
  Serious: Yes (Other)
  Sender: ABBVIE
  Company Number: US-ABBVIE-5959831

PATIENT
  Sex: Male

DRUGS (2)
  1. RINVOQ [Suspect]
     Active Substance: UPADACITINIB
     Indication: Dermatitis atopic
     Dosage: 15 MILLIGRAM?LAST ADMIN DATE-2024?INCREASED
     Route: 048
     Dates: start: 202401
  2. RINVOQ [Suspect]
     Active Substance: UPADACITINIB
     Indication: Dermatitis atopic
     Dosage: 30 MILLIGRAM?FIRST ADMIN DATE-2024
     Route: 048
     Dates: end: 202407

REACTIONS (2)
  - Brain neoplasm [Recovering/Resolving]
  - Lymphoma [Recovering/Resolving]

NARRATIVE: CASE EVENT DATE: 20240101
